FAERS Safety Report 5285160-5 (Version None)
Quarter: 2007Q2

REPORT INFORMATION
  Report Type: 
  Country: None (occurrence: None)
  Receive Date: 20070403
  Receipt Date: 20070330
  Transmission Date: 20071010
  Serious: No
  Sender: FDA-Public Use
  Company Number: 2006UW07717

PATIENT
  Age: 50 Year
  Sex: Female
  Weight: 116.4 kg

DRUGS (4)
  1. SEROQUEL [Suspect]
     Route: 048
     Dates: start: 20000101
  2. ABILIFY [Concomitant]
     Dates: start: 20040101
  3. STELAZINE [Concomitant]
     Dates: start: 19960101
  4. OLANZAPINE [Concomitant]

REACTIONS (1)
  - DIABETES MELLITUS [None]
